FAERS Safety Report 6727663-X (Version None)
Quarter: 2010Q2

REPORT INFORMATION
  Report Type: 
  Country: None (occurrence: None)
  Receive Date: 20100517
  Receipt Date: 20100430
  Transmission Date: 20101027
  Serious: Yes (Other)
  Sender: FDA-Public Use
  Company Number: US-ROCHE-681355

PATIENT
  Sex: Female
  Weight: 66.2 kg

DRUGS (7)
  1. BONIVA [Suspect]
     Indication: OSTEOPOROSIS
     Route: 048
     Dates: start: 20050101, end: 20100101
  2. BONIVA [Suspect]
     Route: 048
  3. DIOVAN [Concomitant]
  4. SIMVASTATIN [Concomitant]
  5. LIPITOR [Concomitant]
  6. HYDROCHLORTHIAZID [Concomitant]
  7. METHYLPREDNISOLONE [Concomitant]

REACTIONS (9)
  - ARTHRALGIA [None]
  - BONE METABOLISM DISORDER [None]
  - DENTAL PLAQUE [None]
  - EXOSTOSIS [None]
  - HEADACHE [None]
  - IMPAIRED HEALING [None]
  - PROCEDURAL PAIN [None]
  - PSEUDOCYST [None]
  - TOOTH EXTRACTION [None]
